FAERS Safety Report 7990055-X (Version None)
Quarter: 2011Q4

REPORT INFORMATION
  Report Type: 
  Country: None (occurrence: None)
  Receive Date: 20111219
  Receipt Date: 20110613
  Transmission Date: 20120403
  Serious: No
  Sender: FDA-Public Use
  Company Number: US-ASTRAZENECA-2011SE35884

PATIENT
  Age: 55 Year
  Sex: Male
  Weight: 64.9 kg

DRUGS (4)
  1. ASPIRIN [Concomitant]
  2. CALCIUM [Concomitant]
  3. CRESTOR [Suspect]
     Route: 048
  4. VITAMIN [Concomitant]

REACTIONS (4)
  - GASTROOESOPHAGEAL REFLUX DISEASE [None]
  - THROAT IRRITATION [None]
  - MYALGIA [None]
  - NASAL DRYNESS [None]
